FAERS Safety Report 6817527-5 (Version None)
Quarter: 2010Q3

REPORT INFORMATION
  Report Type: 
  Country: None (occurrence: None)
  Receive Date: 20100706
  Receipt Date: 20100702
  Transmission Date: 20110219
  Serious: Yes (Life-Threatening, Hospitalization, Disabling, Other)
  Sender: FDA-Public Use
  Company Number: B0663925A

PATIENT
  Age: 49 Year
  Sex: Male
  Weight: 65 kg

DRUGS (14)
  1. MARAVIROC [Suspect]
     Indication: HIV INFECTION
     Dosage: 150MG TWICE PER DAY
     Route: 048
  2. ASPIRIN [Concomitant]
     Dosage: 75MG PER DAY
     Route: 048
  3. DARUNAVIR [Concomitant]
     Indication: HIV INFECTION
     Dosage: 600MG TWICE PER DAY
     Route: 048
     Dates: start: 20090901
  4. DILTIAZEM [Concomitant]
     Dosage: 300MG PER DAY
     Route: 048
  5. ISOSORBIDE MONONITRATE [Concomitant]
     Dosage: 40MG TWICE PER DAY
     Route: 048
  6. MEBEVERINE [Concomitant]
     Indication: IRRITABLE BOWEL SYNDROME
     Dosage: 135MG THREE TIMES PER DAY
     Route: 048
  7. NICORANDIL [Concomitant]
     Dosage: 20MG TWICE PER DAY
     Route: 048
  8. OMEPRAZOLE [Concomitant]
     Dosage: 20MG PER DAY
     Route: 048
  9. PULMICORT [Concomitant]
     Indication: ASTHMA
     Route: 055
  10. RALTEGRAVIR [Concomitant]
     Indication: HIV INFECTION
     Dosage: 400MG TWICE PER DAY
     Route: 048
     Dates: start: 20090901
  11. RAMIPRIL [Concomitant]
     Indication: HYPERTENSION
     Dosage: 5MG TWICE PER DAY
     Route: 048
  12. RITONAVIR [Concomitant]
     Indication: HIV INFECTION
     Dosage: 100MG TWICE PER DAY
     Route: 048
     Dates: start: 20090901
  13. ROSUVASTATIN [Concomitant]
     Indication: BLOOD CHOLESTEROL INCREASED
     Dosage: 5MG PER DAY
     Route: 048
  14. SPIRONOLACTONE [Concomitant]
     Indication: CARDIAC FAILURE
     Dosage: 20MG PER DAY
     Route: 048

REACTIONS (1)
  - MYOCARDIAL ISCHAEMIA [None]
